FAERS Safety Report 22269435 (Version 2)
Quarter: 2023Q2

REPORT INFORMATION
  Report Type: Spontaneous
  Country: US (occurrence: None)
  Receive Date: 20230501
  Receipt Date: 20230530
  Transmission Date: 20230722
  Serious: No
  Sender: FDA-Public Use
  Company Number: US-ROCHE-3340324

PATIENT
  Age: 54 Year
  Sex: Male
  Weight: 88.53 kg

DRUGS (3)
  1. OCREVUS [Suspect]
     Active Substance: OCRELIZUMAB
     Indication: Progressive relapsing multiple sclerosis
     Dosage: DOT: /FEB/2020, /JAN/2022, /MAY/2022, /JUL/2022
     Route: 065
     Dates: start: 20170714
  2. COPAXONE [Concomitant]
     Active Substance: GLATIRAMER ACETATE
  3. TECFIDERA [Concomitant]
     Active Substance: DIMETHYL FUMARATE

REACTIONS (4)
  - COVID-19 [Unknown]
  - Bronchitis [Unknown]
  - COVID-19 [Unknown]
  - Bronchitis [Unknown]
